FAERS Safety Report 20640411 (Version 3)
Quarter: 2022Q3

REPORT INFORMATION
  Report Type: Spontaneous
  Country: US (occurrence: US)
  Receive Date: 20220327
  Receipt Date: 20220720
  Transmission Date: 20221027
  Serious: No
  Sender: FDA-Public Use
  Company Number: US-SA-SAC20220323000118

PATIENT
  Sex: Female

DRUGS (3)
  1. DUPIXENT [Suspect]
     Active Substance: DUPILUMAB
     Indication: Dermatitis atopic
     Dosage: 300 MG, QOW
     Route: 058
  2. DUPIXENT [Suspect]
     Active Substance: DUPILUMAB
     Indication: Hyperhidrosis
  3. DUPIXENT [Suspect]
     Active Substance: DUPILUMAB
     Indication: Second trimester pregnancy

REACTIONS (7)
  - Injection site pruritus [Not Recovered/Not Resolved]
  - Injection site rash [Unknown]
  - Injection site swelling [Unknown]
  - Product use in unapproved indication [Unknown]
  - Exposure during pregnancy [Unknown]
  - Rash [Unknown]
  - Therapeutic response shortened [Unknown]
